FAERS Safety Report 6279371-X (Version None)
Quarter: 2009Q3

REPORT INFORMATION
  Report Type: 
  Country: None (occurrence: None)
  Receive Date: 20090723
  Receipt Date: 20090716
  Transmission Date: 20100115
  Serious: Yes (Other)
  Sender: FDA-Public Use
  Company Number: AU-AVENTIS-200917047GDDC

PATIENT
  Age: 60 Year
  Sex: Male

DRUGS (6)
  1. ARAVA [Suspect]
     Indication: RHEUMATOID ARTHRITIS
     Dates: start: 20060531
  2. SALAZOPYRIN [Concomitant]
     Dosage: DOSE: UNK
  3. SPIRACTIN                          /00536902/ [Concomitant]
     Dosage: DOSE: UNK
  4. NATRILIX                           /00340101/ [Concomitant]
     Dosage: DOSE: UNK
  5. AVANDIA [Concomitant]
     Dosage: DOSE: UNK
  6. ANTIDEPRESSANTS [Concomitant]
     Dosage: DOSE: UNK

REACTIONS (4)
  - EROSIVE OESOPHAGITIS [None]
  - FAECES DISCOLOURED [None]
  - GASTROINTESTINAL HAEMORRHAGE [None]
  - HAEMOGLOBIN DECREASED [None]
